FAERS Safety Report 15826610 (Version 1)
Quarter: 2019Q1

REPORT INFORMATION
  Report Type: Spontaneous
  Country: US (occurrence: US)
  Receive Date: 20190115
  Receipt Date: 20190115
  Transmission Date: 20190417
  Serious: No
  Sender: FDA-Public Use
  Company Number: US-PFIZER INC-2019017830

PATIENT
  Sex: Female

DRUGS (1)
  1. EFFEXOR XR [Suspect]
     Active Substance: VENLAFAXINE HYDROCHLORIDE
     Dosage: UNK, DAILY

REACTIONS (7)
  - General physical health deterioration [Unknown]
  - Withdrawal syndrome [Unknown]
  - Confusional state [Unknown]
  - Malaise [Unknown]
  - Nausea [Unknown]
  - Impaired driving ability [Unknown]
  - Agitation [Unknown]
